FAERS Safety Report 4969947-1 (Version None)
Quarter: 2006Q1

REPORT INFORMATION
  Report Type: 
  Country: None (occurrence: None)
  Receive Date: 20060202
  Receipt Date: 20050817
  Transmission Date: 20060701
  Serious: Yes (Other)
  Sender: FDA-Public Use
  Company Number: PHEH2005US09124

PATIENT
  Sex: Female

DRUGS (4)
  1. RITALIN LA [Suspect]
     Dosage: 5 MG PER DAY, ORAL
     Route: 048
     Dates: start: 20010928
  2. WELLBUTRIN SR [Suspect]
     Dosage: 150 MG, BID, ORAL
     Route: 048
     Dates: start: 20010309
  3. PROZAC [Suspect]
     Dosage: 20 MG PER DAY, ORAL
     Route: 048
     Dates: start: 20010801
  4. REMERON [Suspect]
     Dosage: 15 MG TWICE PER DAY, ORAL
     Route: 048
     Dates: start: 20010927

REACTIONS (4)
  - CONVULSION [None]
  - DEPRESSION [None]
  - FATIGUE [None]
  - GRAND MAL CONVULSION [None]
